FAERS Safety Report 16142476 (Version 1)
Quarter: 2019Q2

REPORT INFORMATION
  Report Type: Spontaneous
  Country: GB (occurrence: GB)
  Receive Date: 20190401
  Receipt Date: 20190401
  Transmission Date: 20190711
  Serious: Yes (Other)
  Sender: FDA-Public Use
  Company Number: GB-SA-2019SA083613

PATIENT
  Age: 49 Year
  Sex: Male
  Weight: 145 kg

DRUGS (5)
  1. RAMIPRIL. [Concomitant]
     Active Substance: RAMIPRIL
     Dosage: 1 DF, QD, IN THE MORNING
     Route: 065
     Dates: start: 20150603
  2. INDAPAMIDE. [Suspect]
     Active Substance: INDAPAMIDE
     Indication: ESSENTIAL HYPERTENSION
     Dosage: 2.5 MG, QD, IN THE MORNING
     Route: 065
     Dates: start: 20150930, end: 20180720
  3. OMEPRAZOLE. [Concomitant]
     Active Substance: OMEPRAZOLE
     Dosage: 1 DF, PRN, DAILY
     Route: 065
     Dates: start: 20131009
  4. FELODIPINE. [Concomitant]
     Active Substance: FELODIPINE
     Dosage: 1 DF, QD
     Route: 065
     Dates: start: 20180109, end: 20190306
  5. DOXAZOSIN [Concomitant]
     Active Substance: DOXAZOSIN\DOXAZOSIN MESYLATE
     Dosage: 1 DF, QD
     Route: 065
     Dates: start: 20190306

REACTIONS (2)
  - Erythema [Unknown]
  - External ear pain [Recovered/Resolved]

NARRATIVE: CASE EVENT DATE: 20150930
